FAERS Safety Report 10802321 (Version 1)
Quarter: 2015Q1

REPORT INFORMATION
  Report Type: Spontaneous
  Country: KR (occurrence: KR)
  Receive Date: 20150217
  Receipt Date: 20150217
  Transmission Date: 20150721
  Serious: Yes (Other)
  Sender: FDA-Public Use
  Company Number: KR-PFIZER INC-2015057344

PATIENT
  Age: 58 Year
  Sex: Male

DRUGS (2)
  1. SILDENAFIL CITRATE. [Suspect]
     Active Substance: SILDENAFIL CITRATE
     Indication: PORTOPULMONARY HYPERTENSION
     Dosage: 25 MG, THRICE DAILY
  2. SILDENAFIL CITRATE. [Suspect]
     Active Substance: SILDENAFIL CITRATE
     Dosage: 50 MG, UNK
     Route: 048

REACTIONS (4)
  - Hepatopulmonary syndrome [Recovering/Resolving]
  - Product use issue [Recovered/Resolved]
  - Ventilation perfusion mismatch [Recovered/Resolved]
  - Condition aggravated [Recovering/Resolving]
